FAERS Safety Report 23993840 (Version 2)
Quarter: 2024Q3

REPORT INFORMATION
  Report Type: Spontaneous
  Country: US (occurrence: US)
  Receive Date: 20240620
  Receipt Date: 20240917
  Transmission Date: 20241017
  Serious: Yes (Other)
  Sender: BRISTOL MYERS SQUIBB
  Company Number: US-BRISTOL-MYERS SQUIBB COMPANY-2024-096376

PATIENT
  Age: 38 Year
  Sex: Female

DRUGS (1)
  1. OPDUALAG [Suspect]
     Active Substance: NIVOLUMAB\RELATLIMAB
     Indication: Brain neoplasm malignant
     Dosage: DOSE : NIVO: 480MG RELATLIMAB:160MG;     FREQ : ^EVERY 4 WEEKS^
     Route: 042
     Dates: end: 20240523

REACTIONS (2)
  - Malignant neoplasm progression [Unknown]
  - Off label use [Unknown]
